FAERS Safety Report 11409361 (Version 1)
Quarter: 2015Q3

REPORT INFORMATION
  Report Type: Report from Study
  Country: DE (occurrence: DE)
  Receive Date: 20150824
  Receipt Date: 20150824
  Transmission Date: 20151125
  Serious: Yes (Death, Other)
  Sender: FDA-Public Use
  Company Number: DE-ROCHE-1622363

PATIENT

DRUGS (10)
  1. CAPECITABINE. [Suspect]
     Active Substance: CAPECITABINE
     Indication: ADENOCARCINOMA GASTRIC
     Dosage: ON DAYS 1-21, EVERY 3 WEEKS
     Route: 065
  2. EPIRUBICIN [Suspect]
     Active Substance: EPIRUBICIN
     Indication: GASTROOESOPHAGEAL CANCER
  3. CISPLATIN. [Suspect]
     Active Substance: CISPLATIN
     Indication: GASTROOESOPHAGEAL CANCER
  4. FLUOROURACIL. [Suspect]
     Active Substance: FLUOROURACIL
     Indication: GASTROOESOPHAGEAL CANCER
  5. OXALIPLATIN. [Suspect]
     Active Substance: OXALIPLATIN
     Indication: ADENOCARCINOMA GASTRIC
     Dosage: ON DAY 1
     Route: 065
  6. CAPECITABINE. [Suspect]
     Active Substance: CAPECITABINE
     Indication: GASTROOESOPHAGEAL CANCER
  7. EPIRUBICIN [Suspect]
     Active Substance: EPIRUBICIN
     Indication: ADENOCARCINOMA GASTRIC
     Dosage: ON DAY 1
     Route: 065
  8. CISPLATIN. [Suspect]
     Active Substance: CISPLATIN
     Indication: ADENOCARCINOMA GASTRIC
     Dosage: ON DAY 1
     Route: 065
  9. FLUOROURACIL. [Suspect]
     Active Substance: FLUOROURACIL
     Indication: ADENOCARCINOMA GASTRIC
     Dosage: ON DAYS 1-21
     Route: 065
  10. OXALIPLATIN. [Suspect]
     Active Substance: OXALIPLATIN
     Indication: GASTROOESOPHAGEAL CANCER

REACTIONS (13)
  - Sepsis [Fatal]
  - Neutropenia [Unknown]
  - Vomiting [Unknown]
  - Pyrexia [Unknown]
  - Thrombocytopenia [Unknown]
  - Palmar-plantar erythrodysaesthesia syndrome [Unknown]
  - Paraesthesia [Unknown]
  - Anaemia [Unknown]
  - Diarrhoea [Unknown]
  - Stomatitis [Unknown]
  - Leukopenia [Unknown]
  - Asthenia [Unknown]
  - Nausea [Unknown]
